FAERS Safety Report 8874425 (Version 2)
Quarter: 2012Q4

REPORT INFORMATION
  Report Type: 
  Country: US (occurrence: US)
  Receive Date: 20121023
  Receipt Date: 20121105
  Transmission Date: 20130627
  Serious: No
  Sender: FDA-Public Use
  Company Number: US-VERTEX PHARMACEUTICAL INC.-2012-023234

PATIENT
  Age: 39 Year
  Sex: Female
  Weight: 109 kg

DRUGS (9)
  1. VX-950 [Suspect]
     Indication: HEPATITIS C
     Dosage: 750 mg, tid
     Route: 048
  2. PEGASYS [Concomitant]
     Indication: HEPATITIS C
  3. RIBAVIRIN [Concomitant]
     Indication: HEPATITIS C
     Dosage: 200 mg, UNK
  4. ATIVAN [Concomitant]
     Dosage: .5 mg, UNK
  5. OXYCODONE [Concomitant]
     Dosage: 5 mg, UNK
  6. TIZANIDINE [Concomitant]
     Dosage: 2 mg, UNK
  7. CITALOPRAM [Concomitant]
     Dosage: 10 mg, UNK
  8. VITAMIN D /00107901/ [Concomitant]
     Dosage: 1000 ut, UNK
  9. VITAMIN B CO ALMUS [Concomitant]

REACTIONS (7)
  - Dizziness [Unknown]
  - Headache [Unknown]
  - Constipation [Recovered/Resolved]
  - Fatigue [Unknown]
  - Rash [Unknown]
  - Rash pruritic [Recovered/Resolved]
  - Nausea [Unknown]
